FAERS Safety Report 12062820 (Version 1)
Quarter: 2016Q1

REPORT INFORMATION
  Report Type: Spontaneous
  Country: US (occurrence: US)
  Receive Date: 20160210
  Receipt Date: 20160210
  Transmission Date: 20160526
  Serious: No
  Sender: FDA-Public Use
  Company Number: US-BIOGEN-2013BI068128

PATIENT
  Age: 20 Year
  Sex: Female

DRUGS (2)
  1. AVONEX [Suspect]
     Active Substance: INTERFERON BETA-1A
     Route: 065
     Dates: start: 20131025
  2. AVONEX [Suspect]
     Active Substance: INTERFERON BETA-1A
     Indication: MULTIPLE SCLEROSIS
     Route: 030
     Dates: start: 20121015

REACTIONS (5)
  - Influenza like illness [Recovered/Resolved]
  - Myalgia [Unknown]
  - Arthralgia [Unknown]
  - Injection site bruising [Unknown]
  - Headache [Unknown]

NARRATIVE: CASE EVENT DATE: 201210
